FAERS Safety Report 10433197 (Version 1)
Quarter: 2014Q3

REPORT INFORMATION
  Report Type: Spontaneous
  Country: US (occurrence: None)
  Receive Date: 20140815
  Receipt Date: 20140815
  Transmission Date: 20150326
  Serious: No
  Sender: FDA-Public Use
  Company Number: A-US2014-101689

PATIENT
  Age: 58 Year
  Sex: Female

DRUGS (6)
  1. BACTRIM (SULFAMETHOXAZOLE, TRIMETHOPRIM) [Concomitant]
  2. BENICAR [Concomitant]
     Active Substance: OLMESARTAN MEDOXOMIL
  3. OPSUMIT [Suspect]
     Active Substance: MACITENTAN
     Indication: PULMONARY HYPERTENSION
     Route: 048
     Dates: start: 20140618
  4. CELLCEPT [Concomitant]
     Active Substance: MYCOPHENOLATE MOFETIL\MYCOPHENOLATE MOFETIL HYDROCHLORIDE
  5. PREDNISONE (PREDNISONE) [Concomitant]
     Active Substance: PREDNISONE
  6. LASIX [Concomitant]
     Active Substance: FUROSEMIDE

REACTIONS (3)
  - Insomnia [None]
  - Sinus congestion [None]
  - Headache [None]

NARRATIVE: CASE EVENT DATE: 20140618
